FAERS Safety Report 8547813-2 (Version None)
Quarter: 2012Q3

REPORT INFORMATION
  Report Type: 
  Country: None (occurrence: None)
  Receive Date: 20120727
  Receipt Date: 20120214
  Transmission Date: 20120928
  Serious: Yes (Other)
  Sender: FDA-Public Use
  Company Number: US-ASTRAZENECA-2012SE08172

PATIENT
  Age: 31 Year
  Sex: Female
  Weight: 73.9 kg

DRUGS (9)
  1. SEROQUEL [Suspect]
     Indication: BIPOLAR I DISORDER
     Route: 048
  2. SEROQUEL [Suspect]
     Indication: DEPRESSION
     Route: 048
  3. ALBUTEROL [Concomitant]
  4. CONAZEPAM [Concomitant]
  5. BENTYL [Concomitant]
  6. VENTOLIN [Concomitant]
  7. LORAZEPAM [Concomitant]
  8. AMITRIPTYLINE HCL [Concomitant]
  9. XELEXA [Concomitant]

REACTIONS (2)
  - DRUG DOSE OMISSION [None]
  - SUICIDAL IDEATION [None]
